FAERS Safety Report 12391061 (Version 1)
Quarter: 2016Q2

REPORT INFORMATION
  Report Type: Spontaneous
  Country: US (occurrence: US)
  Receive Date: 20160520
  Receipt Date: 20160520
  Transmission Date: 20160815
  Serious: No
  Sender: FDA-Public Use
  Company Number: US-ACTELION-A-US2016-136588

PATIENT
  Age: 84 Year
  Sex: Female

DRUGS (14)
  1. VALCHLOR [Suspect]
     Active Substance: MECHLORETHAMINE
     Indication: MYCOSIS FUNGOIDES
     Dosage: UNK
     Route: 061
     Dates: start: 20140519
  2. CLOBETA [Concomitant]
     Active Substance: CLOBETASOL PROPIONATE\COAL TAR
  3. DESONIDE. [Concomitant]
     Active Substance: DESONIDE
  4. VITAMIN D [Concomitant]
     Active Substance: CHOLECALCIFEROL
  5. RANITIDINE. [Concomitant]
     Active Substance: RANITIDINE
  6. FOLIC ACID. [Concomitant]
     Active Substance: FOLIC ACID
  7. GLUCOSAMINE + CHONDROITIN [Concomitant]
  8. FISH OIL [Concomitant]
     Active Substance: FISH OIL
  9. POTASSIUM [Concomitant]
     Active Substance: POTASSIUM
  10. ASPIRIN. [Concomitant]
     Active Substance: ASPIRIN
  11. LOVASTATIN. [Concomitant]
     Active Substance: LOVASTATIN
  12. NAMENDA [Concomitant]
     Active Substance: MEMANTINE HYDROCHLORIDE
  13. COENZYME Q10 [Concomitant]
     Active Substance: UBIDECARENONE
  14. PRESERVISION [Concomitant]
     Active Substance: MINERALS\VITAMINS

REACTIONS (1)
  - Back disorder [Recovering/Resolving]
